FAERS Safety Report 4410990-9 (Version None)
Quarter: 2004Q3

REPORT INFORMATION
  Report Type: 
  Country: None (occurrence: None)
  Receive Date: 20040729
  Receipt Date: 20040716
  Transmission Date: 20050211
  Serious: Yes (Other)
  Sender: FDA-Public Use
  Company Number: AU-GLAXOSMITHKLINE-B0340401A

PATIENT
  Sex: Female

DRUGS (2)
  1. VENTOLIN [Suspect]
     Indication: ASTHMA
     Route: 065
  2. SERETIDE [Suspect]
     Indication: ASTHMA
     Route: 065

REACTIONS (4)
  - ASTHMA [None]
  - DIZZINESS [None]
  - DYSPNOEA EXACERBATED [None]
  - NAUSEA [None]
